FAERS Safety Report 24253935 (Version 2)
Quarter: 2025Q1

REPORT INFORMATION
  Report Type: Report from Study
  Country: CA (occurrence: CA)
  Receive Date: 20240827
  Receipt Date: 20250205
  Transmission Date: 20250409
  Serious: Yes (Other)
  Sender: SANDOZ
  Company Number: CA-002147023-NVSC2019CA054134

PATIENT
  Sex: Female

DRUGS (5)
  1. ERELZI [Suspect]
     Active Substance: ETANERCEPT-SZZS
     Indication: Rheumatoid arthritis
     Dosage: 50 MG, QW (PRE-FILLED PEN)
     Route: 058
     Dates: start: 20191205
  2. ERELZI [Suspect]
     Active Substance: ETANERCEPT-SZZS
     Dosage: 50 MG, QW, (ERELZI (PRE-FILLED SYRINGE)
     Route: 058
     Dates: start: 20191205
  3. METHOTREXATE [Suspect]
     Active Substance: METHOTREXATE
     Indication: Product used for unknown indication
     Dosage: 1 DF, QW
     Route: 058
     Dates: start: 201809, end: 201911
  4. CIMZIA [Concomitant]
     Active Substance: CERTOLIZUMAB PEGOL
     Indication: Product used for unknown indication
     Dosage: Q2MO
     Route: 058
     Dates: start: 201903, end: 201911
  5. PLAQUENIL [Concomitant]
     Active Substance: HYDROXYCHLOROQUINE SULFATE
     Indication: Product used for unknown indication
     Dosage: 1 DF, QD
     Route: 048
     Dates: start: 201812

REACTIONS (8)
  - Presyncope [Unknown]
  - Musculoskeletal stiffness [Recovered/Resolved]
  - Discomfort [Unknown]
  - Asthenia [Unknown]
  - Tinnitus [Unknown]
  - Arthralgia [Unknown]
  - Incorrect dose administered [Unknown]
  - Drug intolerance [Unknown]
